FAERS Safety Report 5421744-9 (Version None)
Quarter: 2007Q3

REPORT INFORMATION
  Report Type: 
  Country: None (occurrence: None)
  Receive Date: 20070821
  Receipt Date: 20070809
  Transmission Date: 20080115
  Serious: Yes (Other)
  Sender: FDA-Public Use
  Company Number: US-PFIZER INC-2007067664

PATIENT
  Age: 69 Year
  Sex: Male

DRUGS (4)
  1. SERTRALINE [Suspect]
     Indication: MAJOR DEPRESSION
     Dosage: DAILY DOSE:150MG
  2. RISPERIDONE [Interacting]
     Indication: MAJOR DEPRESSION
     Dosage: DAILY DOSE:3MG
  3. METOPROLOL SUCCINATE [Concomitant]
     Dosage: DAILY DOSE:200MG
  4. TRAZODONE HCL [Concomitant]
     Indication: INSOMNIA
     Dosage: DAILY DOSE:50MG

REACTIONS (2)
  - DRUG INTERACTION [None]
  - SEROTONIN SYNDROME [None]
